FAERS Safety Report 4298525-5 (Version None)
Quarter: 2004Q1

REPORT INFORMATION
  Report Type: 
  Country: None (occurrence: None)
  Receive Date: 20040218
  Receipt Date: 20040210
  Transmission Date: 20041129
  Serious: Yes (Death, Hospitalization)
  Sender: FDA-Public Use
  Company Number: WAES 0402DEU00057

PATIENT
  Age: 59 Year
  Sex: Male
  Weight: 100 kg

DRUGS (8)
  1. ALLOPURINOL [Concomitant]
     Indication: HYPERURICAEMIA
     Route: 048
     Dates: end: 20031018
  2. ASPIRIN [Concomitant]
     Indication: CORONARY ARTERY DISEASE
     Route: 048
     Dates: end: 20031018
  3. BISOPROLOL FUMARATE [Suspect]
     Indication: HYPERTENSION
     Route: 048
     Dates: end: 20031025
  4. DIAZEPAM [Suspect]
     Indication: PAIN
     Route: 048
     Dates: start: 20031011, end: 20031016
  5. GLYBURIDE [Suspect]
     Indication: DIABETES MELLITUS
     Route: 048
     Dates: end: 20031018
  6. METFORMIN [Concomitant]
     Indication: DIABETES MELLITUS
     Route: 048
     Dates: end: 20031018
  7. PAROXETINE [Suspect]
     Indication: PAIN
     Route: 048
     Dates: start: 20031009, end: 20031018
  8. VIOXX [Suspect]
     Indication: SPONDYLOSIS
     Route: 048
     Dates: start: 20000101, end: 20031018

REACTIONS (8)
  - ASPIRATION [None]
  - ASTHENIA [None]
  - CARDIAC FAILURE [None]
  - DRUG INTERACTION [None]
  - PAIN [None]
  - SOMNOLENCE [None]
  - URINARY TRACT INFECTION [None]
  - VOMITING [None]
